FAERS Safety Report 24774415 (Version 1)
Quarter: 2024Q4

REPORT INFORMATION
  Report Type: Spontaneous
  Country: US (occurrence: US)
  Receive Date: 20241225
  Receipt Date: 20241225
  Transmission Date: 20250115
  Serious: No
  Sender: AMGEN
  Company Number: US-AMGEN-USASP2024250712

PATIENT
  Age: 28 Year
  Sex: Male

DRUGS (3)
  1. CINACALCET HYDROCHLORIDE [Suspect]
     Active Substance: CINACALCET HYDROCHLORIDE
     Indication: Hyperparathyroidism secondary
     Dosage: UNK
     Route: 065
  2. XGEVA [Suspect]
     Active Substance: DENOSUMAB
     Indication: Hyperparathyroidism secondary
     Dosage: 120 MILLIGRAM, QMO
     Route: 065
  3. ZOMETA [Concomitant]
     Active Substance: ZOLEDRONIC ACID
     Indication: Hyperparathyroidism secondary
     Dosage: UNK

REACTIONS (3)
  - Nausea [Unknown]
  - Off label use [Unknown]
  - Drug effective for unapproved indication [Unknown]
